FAERS Safety Report 5754763-3 (Version None)
Quarter: 2008Q2

REPORT INFORMATION
  Report Type: 
  Country: None (occurrence: None)
  Receive Date: 20080530
  Receipt Date: 20080522
  Transmission Date: 20081010
  Serious: Yes (Other)
  Sender: FDA-Public Use
  Company Number: US-GILEAD-2008-0016061

PATIENT
  Sex: Female
  Weight: 99.88 kg

DRUGS (11)
  1. LETAIRIS [Suspect]
     Indication: PULMONARY HYPERTENSION
     Route: 048
     Dates: start: 20080319, end: 20080320
  2. LASIX [Concomitant]
     Route: 048
  3. SPIRONOLACTONE [Concomitant]
     Route: 048
  4. MONOPRIL [Concomitant]
     Route: 048
  5. ADVAIR DISKUS 100/50 [Concomitant]
     Route: 055
  6. SINGULAIR [Concomitant]
     Route: 048
  7. XOPENEX [Concomitant]
     Dosage: 0.31/VIAL
     Route: 055
  8. SYNTHROID [Concomitant]
     Route: 048
  9. REQUIP [Concomitant]
     Route: 048
  10. OXYCODONE HCL [Concomitant]
     Route: 048
  11. FIORINAL [Concomitant]
     Route: 048

REACTIONS (9)
  - DIARRHOEA [None]
  - ERYTHEMA [None]
  - FLUSHING [None]
  - HAEMATURIA [None]
  - HEADACHE [None]
  - OEDEMA PERIPHERAL [None]
  - PALPITATIONS [None]
  - RASH [None]
  - SERUM SICKNESS [None]
